FAERS Safety Report 19065916 (Version 5)
Quarter: 2023Q2

REPORT INFORMATION
  Report Type: Report from Study
  Country: CA (occurrence: CA)
  Receive Date: 20210327
  Receipt Date: 20230630
  Transmission Date: 20230721
  Serious: Yes (Hospitalization, Other)
  Sender: FDA-Public Use
  Company Number: CA-NOVARTISPH-NVSC2021CA066195

PATIENT
  Age: 45 Year
  Sex: Female

DRUGS (1)
  1. ILARIS [Suspect]
     Active Substance: CANAKINUMAB
     Indication: Muckle-Wells syndrome
     Dosage: 150 MG, EVERY 8 WEEKS
     Route: 058
     Dates: start: 20141209

REACTIONS (15)
  - Abscess [Unknown]
  - Cellulitis [Unknown]
  - Acute kidney injury [Unknown]
  - Deafness [Recovered/Resolved]
  - Septic shock [Unknown]
  - Hypoacusis [Unknown]
  - Urticaria [Recovered/Resolved]
  - Pyrexia [Recovered/Resolved]
  - Urticaria [Unknown]
  - Chills [Recovered/Resolved]
  - Ear infection [Unknown]
  - Fatigue [Recovered/Resolved]
  - Infection [Unknown]
  - Product dose omission issue [Unknown]
  - Inappropriate schedule of product administration [Unknown]

NARRATIVE: CASE EVENT DATE: 20200301
